FAERS Safety Report 23307299 (Version 2)
Quarter: 2023Q4

REPORT INFORMATION
  Report Type: Other
  Country: GR (occurrence: GR)
  Receive Date: 20231218
  Receipt Date: 20231226
  Transmission Date: 20240110
  Serious: Yes (Other)
  Sender: FDA-Public Use
  Company Number: GR-ASTELLAS-2023US037424

PATIENT
  Age: 78 Year
  Sex: Male

DRUGS (14)
  1. ISAVUCONAZOLE [Suspect]
     Active Substance: ISAVUCONAZOLE
     Indication: Fungal infection
     Dosage: UNK UNK, UNKNOWN FREQ.
     Route: 042
  2. ISAVUCONAZOLE [Suspect]
     Active Substance: ISAVUCONAZOLE
     Indication: Endophthalmitis
  3. VORICONAZOLE [Suspect]
     Active Substance: VORICONAZOLE
     Indication: Fungal infection
     Dosage: UNK UNK, UNKNOWN FREQ.
     Route: 065
  4. VORICONAZOLE [Suspect]
     Active Substance: VORICONAZOLE
     Indication: Endophthalmitis
     Dosage: UNK UNK, UNKNOWN FREQ.
     Route: 050
  5. VORICONAZOLE [Suspect]
     Active Substance: VORICONAZOLE
     Dosage: UNK UNK, UNKNOWN FREQ.
     Route: 061
  6. VORICONAZOLE [Suspect]
     Active Substance: VORICONAZOLE
     Dosage: UNK UNK, UNKNOWN FREQ.
     Route: 042
  7. AMPHOTERICIN B [Suspect]
     Active Substance: AMPHOTERICIN B
     Indication: Fungal infection
     Dosage: UNK UNK, UNKNOWN FREQ.
     Route: 042
  8. AMPHOTERICIN B [Suspect]
     Active Substance: AMPHOTERICIN B
     Indication: Endophthalmitis
  9. AMIKACIN [Suspect]
     Active Substance: AMIKACIN
     Indication: Fungal infection
     Dosage: UNK UNK, UNKNOWN FREQ.
     Route: 050
  10. AMIKACIN [Suspect]
     Active Substance: AMIKACIN
     Indication: Endophthalmitis
     Dosage: UNK UNK, UNKNOWN FREQ.
     Route: 061
  11. VANCOMYCIN [Suspect]
     Active Substance: VANCOMYCIN
     Indication: Fungal infection
     Dosage: UNK UNK, UNKNOWN FREQ.
     Route: 065
  12. VANCOMYCIN [Suspect]
     Active Substance: VANCOMYCIN
     Indication: Endophthalmitis
  13. MOXIFLOXACIN [Suspect]
     Active Substance: MOXIFLOXACIN
     Indication: Fungal infection
     Dosage: UNK UNK, UNKNOWN FREQ.
     Route: 042
  14. MOXIFLOXACIN [Suspect]
     Active Substance: MOXIFLOXACIN
     Indication: Endophthalmitis

REACTIONS (5)
  - Keratitis [Unknown]
  - Endophthalmitis [Unknown]
  - Condition aggravated [Unknown]
  - Drug ineffective for unapproved indication [Unknown]
  - Off label use [Unknown]
